FAERS Safety Report 6165376-6 (Version None)
Quarter: 2009Q2

REPORT INFORMATION
  Report Type: 
  Country: None (occurrence: None)
  Receive Date: 20090423
  Receipt Date: 20090414
  Transmission Date: 20091009
  Serious: Yes (Hospitalization, Other)
  Sender: FDA-Public Use
  Company Number: BR-ABBOTT-09P-020-0568088-00

PATIENT
  Sex: Male
  Weight: 65 kg

DRUGS (4)
  1. HUMIRA [Suspect]
     Indication: RHEUMATOID ARTHRITIS
     Route: 058
     Dates: start: 20040801
  2. UNKNOWN MAGISTRAL FORMULA [Concomitant]
     Indication: DRUG USE FOR UNKNOWN INDICATION
     Route: 048
     Dates: start: 19890101
  3. UNKNOWN MAGISTRAL FORMULA [Concomitant]
     Route: 048
  4. ANTI-INFLAMMATORY [Concomitant]
     Indication: DRUG USE FOR UNKNOWN INDICATION

REACTIONS (4)
  - INGUINAL HERNIA [None]
  - LOCALISED INFECTION [None]
  - POISONING [None]
  - THROMBOSIS [None]
